FAERS Safety Report 5033483-7 (Version None)
Quarter: 2006Q2

REPORT INFORMATION
  Report Type: 
  Country: None (occurrence: None)
  Receive Date: 20060621
  Receipt Date: 20060612
  Transmission Date: 20061013
  Serious: Yes (Hospitalization)
  Sender: FDA-Public Use
  Company Number: 2006-06-0892

PATIENT
  Age: 29 Year
  Sex: Female

DRUGS (12)
  1. PEG-INTRON [Suspect]
     Indication: HEPATITIS C
     Dosage: SUBCUTANEOUS
     Route: 058
     Dates: start: 20060108
  2. RIBAVIRIN [Suspect]
     Indication: HEPATITIS C
     Dosage: ORAL
     Route: 048
     Dates: start: 20060108
  3. ACYCLOVIR [Concomitant]
  4. ALBUTEROL SULFATE AEROSOL SOLUTION [Concomitant]
  5. ATARAX [Concomitant]
  6. CLARINEX [Concomitant]
  7. DEPO-PROVERA INJECTABLE SOLUTION [Concomitant]
  8. DITROPAN XL (OXYBUTYNIN) EXTENDED RELEASE TABLET [Concomitant]
  9. FOLIC ACID TAB [Concomitant]
  10. IBUPROFEN TABLETS [Concomitant]
  11. SINGULAIR [Concomitant]
  12. SYNTHROID [Concomitant]

REACTIONS (5)
  - DEHYDRATION [None]
  - HYDRONEPHROSIS [None]
  - MALNUTRITION [None]
  - ORAL INTAKE REDUCED [None]
  - URINARY TRACT INFECTION [None]
